FAERS Safety Report 15157216 (Version 1)
Quarter: 2018Q3

REPORT INFORMATION
  Report Type: Spontaneous
  Country: JP (occurrence: JP)
  Receive Date: 20180718
  Receipt Date: 20180718
  Transmission Date: 20181010
  Serious: Yes (Other)
  Sender: FDA-Public Use
  Company Number: JP-ABBVIE-18S-087-2422228-00

PATIENT

DRUGS (1)
  1. KLARICID [Suspect]
     Active Substance: CLARITHROMYCIN
     Indication: COUGH
     Route: 048

REACTIONS (2)
  - Hallucination [Unknown]
  - Delirium [Unknown]
